FAERS Safety Report 15629685 (Version 1)
Quarter: 2018Q4

REPORT INFORMATION
  Report Type: Spontaneous
  Country: IN (occurrence: IN)
  Receive Date: 20181117
  Receipt Date: 20181117
  Transmission Date: 20190205
  Serious: Yes (Death, Life-Threatening, Hospitalization, Other)
  Sender: FDA-Public Use
  Company Number: IN-ACCORD-092690

PATIENT
  Age: 20 Year
  Sex: Male

DRUGS (1)
  1. METHOTREXATE. [Suspect]
     Active Substance: METHOTREXATE
     Indication: ACUTE LYMPHOCYTIC LEUKAEMIA
     Dosage: 5 G/M2?HIGH DOSE, RECEIVED JUST 5-6 DAYS BACK

REACTIONS (7)
  - Electrolyte imbalance [Fatal]
  - Drug level increased [Fatal]
  - Toxic epidermal necrolysis [Fatal]
  - Renal failure [Fatal]
  - Pancytopenia [Unknown]
  - Hepatic function abnormal [Fatal]
  - Loss of consciousness [Unknown]
